FAERS Safety Report 5115562-9 (Version None)
Quarter: 2006Q3

REPORT INFORMATION
  Report Type: 
  Country: None (occurrence: None)
  Receive Date: 20060925
  Receipt Date: 20060907
  Transmission Date: 20061208
  Serious: Yes (Hospitalization, Disabling, Other)
  Sender: FDA-Public Use
  Company Number: 2006-147643-NL

PATIENT
  Age: 70 Year
  Sex: Male
  Weight: 74.4 kg

DRUGS (2)
  1. REMERON [Suspect]
     Indication: DEPRESSION
     Dosage: 30 MG DAILY ORAL
     Route: 048
     Dates: start: 20010101
  2. KLONOPIN [Concomitant]

REACTIONS (5)
  - BLOOD POTASSIUM DECREASED [None]
  - EMBOLISM [None]
  - FATIGUE [None]
  - PNEUMONIA [None]
  - THROMBOSIS [None]
